FAERS Safety Report 11843761 (Version 1)
Quarter: 2015Q4

REPORT INFORMATION
  Report Type: Spontaneous
  Country: US (occurrence: US)
  Receive Date: 20151217
  Receipt Date: 20151217
  Transmission Date: 20160305
  Serious: No
  Sender: FDA-Public Use
  Company Number: US-ASTRAZENECA-2015SF22088

PATIENT
  Sex: Male
  Weight: 103.9 kg

DRUGS (6)
  1. LIPITOR [Concomitant]
     Active Substance: ATORVASTATIN CALCIUM
     Indication: BLOOD CHOLESTEROL ABNORMAL
     Dosage: DAILY
     Route: 048
     Dates: start: 201508
  2. BISAPROLOL HCTZ [Concomitant]
     Indication: BLOOD PRESSURE ABNORMAL
     Route: 048
  3. ZYRTEC [Concomitant]
     Active Substance: CETIRIZINE HYDROCHLORIDE
     Indication: MULTIPLE ALLERGIES
     Dosage: DAILY
     Route: 048
  4. BRILINTA [Suspect]
     Active Substance: TICAGRELOR
     Indication: STENT PLACEMENT
     Route: 048
     Dates: start: 201508
  5. NASOCORT [Concomitant]
     Active Substance: BUDESONIDE
     Indication: MULTIPLE ALLERGIES
     Dosage: DAILY
     Route: 045
  6. BISAPROLOL HCTZ [Concomitant]
     Indication: BLOOD PRESSURE ABNORMAL
     Dosage: 5 /6.25 ONE HALF TABLET AT NIGHT
     Route: 048

REACTIONS (3)
  - Sinusitis [Unknown]
  - Head discomfort [Unknown]
  - Nasopharyngitis [Unknown]
